FAERS Safety Report 17363850 (Version 1)
Quarter: 2020Q1

REPORT INFORMATION
  Report Type: Spontaneous
  Country: US (occurrence: US)
  Receive Date: 20200203
  Receipt Date: 20200203
  Transmission Date: 20200409
  Serious: No
  Sender: FDA-Public Use
  Company Number: US-009507513-2001USA002438

PATIENT
  Age: 39 Year
  Sex: Female
  Weight: 127.89 kg

DRUGS (2)
  1. NEXPLANON [Suspect]
     Active Substance: ETONOGESTREL
     Dosage: 1 (ROD) EVERY 3 YEAR
     Route: 059
     Dates: start: 20191218
  2. NEXPLANON [Suspect]
     Active Substance: ETONOGESTREL
     Dosage: 1 (ROD) EVERY 3 YEAR, INTO AN UNSPECIFIED ARM
     Route: 059
     Dates: start: 20191218

REACTIONS (4)
  - No adverse event [Unknown]
  - Product quality issue [Unknown]
  - Complication of device insertion [Recovered/Resolved]
  - Device difficult to use [Recovered/Resolved]

NARRATIVE: CASE EVENT DATE: 20191218
